FAERS Safety Report 9575783 (Version 1)
Quarter: 2013Q4

REPORT INFORMATION
  Report Type: Spontaneous
  Country: US (occurrence: US)
  Receive Date: 20131001
  Receipt Date: 20131001
  Transmission Date: 20140711
  Serious: No
  Sender: FDA-Public Use
  Company Number: US-AMGEN-USASP2012060972

PATIENT
  Age: 50 Year
  Sex: Male

DRUGS (3)
  1. EPOGEN [Suspect]
     Indication: ANAEMIA
     Dosage: UNK
  2. EPOGEN [Suspect]
  3. B12                                /00056201/ [Concomitant]
     Dosage: B12 SHOTS

REACTIONS (1)
  - Haemoglobin decreased [Unknown]
